FAERS Safety Report 8679774 (Version 3)
Quarter: 2012Q4

REPORT INFORMATION
  Report Type: 
  Country: US (occurrence: US)
  Receive Date: 20120724
  Receipt Date: 20120919
  Transmission Date: 20130627
  Serious: Yes (Other)
  Sender: FDA-Public Use
  Company Number: US-CELGENEUS-163-21880-12072010

PATIENT
  Sex: Male
  Weight: 56.7 kg

DRUGS (13)
  1. REVLIMID [Suspect]
     Indication: MULTIPLE MYELOMA
     Dosage: 25 Milligram
     Dates: start: 20100710
  2. REVLIMID [Suspect]
     Dosage: 13.3333 Milligram
     Dates: start: 20120508, end: 201206
  3. DECADRON [Concomitant]
     Indication: MULTIPLE MYELOMA
     Dosage: 20 Milligram
     Route: 065
     Dates: start: 20100510, end: 20101014
  4. DECADRON [Concomitant]
     Route: 065
     Dates: start: 20120508, end: 201206
  5. VELCADE [Concomitant]
     Indication: MULTIPLE MYELOMA
     Route: 065
     Dates: start: 20100719
  6. VELCADE [Concomitant]
     Route: 065
     Dates: start: 20120508, end: 201206
  7. ZANTAC [Concomitant]
     Indication: DRUG USE FOR UNKNOWN INDICATION
     Dosage: 300 Milligram
     Route: 065
  8. ZEMPLAR [Concomitant]
     Indication: DRUG USE FOR UNKNOWN INDICATION
     Dosage: 2 Microgram
     Route: 065
  9. ARANESP [Concomitant]
     Indication: DRUG USE FOR UNKNOWN INDICATION
     Dosage: 23.8095 Microgram
     Route: 065
     Dates: start: 20100920
  10. HYDROCODONE [Concomitant]
     Indication: PAIN
     Dosage: 5-500mg
     Route: 065
     Dates: start: 20100920
  11. ACYCLOVIR [Concomitant]
     Indication: DRUG USE FOR UNKNOWN INDICATION
     Route: 065
  12. BACTRIM [Concomitant]
     Indication: DRUG USE FOR UNKNOWN INDICATION
     Route: 065
  13. PROCRIT [Concomitant]
     Indication: DRUG USE FOR UNKNOWN INDICATION
     Route: 065
     Dates: start: 20110907, end: 201111

REACTIONS (2)
  - Osteonecrosis [Unknown]
  - Herpes zoster [Unknown]
